FAERS Safety Report 6843515-9 (Version None)
Quarter: 2010Q2

REPORT INFORMATION
  Report Type: 
  Country: None (occurrence: None)
  Receive Date: 20100629
  Receipt Date: 20100508
  Transmission Date: 20101027
  Serious: No
  Sender: FDA-Public Use
  Company Number: US-WYE-H15161010

PATIENT
  Sex: Female

DRUGS (2)
  1. PRISTIQ [Suspect]
     Dosage: GRADUALLY DECREASING DOSE, ORAL; ORAL
     Route: 048
     Dates: start: 20100401, end: 20100101
  2. PRISTIQ [Suspect]
     Dosage: GRADUALLY DECREASING DOSE, ORAL; ORAL
     Route: 048
     Dates: start: 20100101

REACTIONS (4)
  - DIZZINESS [None]
  - EAR PAIN [None]
  - HEADACHE [None]
  - INSOMNIA [None]
